FAERS Safety Report 19490808 (Version 3)
Quarter: 2024Q4

REPORT INFORMATION
  Report Type: Report from Study
  Country: US (occurrence: US)
  Receive Date: 20210705
  Receipt Date: 20241204
  Transmission Date: 20250114
  Serious: Yes (Other)
  Sender: SANOFI AVENTIS
  Company Number: US-SA-2021SA215078

PATIENT
  Age: 27 Year
  Sex: Male

DRUGS (4)
  1. DUPILUMAB [Suspect]
     Active Substance: DUPILUMAB
     Indication: Dermatitis atopic
     Dosage: UNK
  2. DUPILUMAB [Suspect]
     Active Substance: DUPILUMAB
     Indication: Dermatitis contact
  3. CYCLOSPORINE [Concomitant]
     Active Substance: CYCLOSPORINE
     Indication: Dermatitis atopic
     Dosage: UNK
  4. CYCLOSPORINE [Concomitant]
     Active Substance: CYCLOSPORINE
     Indication: Dermatitis contact

REACTIONS (7)
  - Cutaneous T-cell lymphoma stage I [Unknown]
  - Parakeratosis [Unknown]
  - Scab [Unknown]
  - Inflammation [Unknown]
  - Eczema [Unknown]
  - Lymphocytic infiltration [Unknown]
  - Off label use [Unknown]
